FAERS Safety Report 9261977 (Version 1)
Quarter: 2013Q2

REPORT INFORMATION
  Report Type: Spontaneous
  Country: US (occurrence: US)
  Receive Date: 20130429
  Receipt Date: 20130429
  Transmission Date: 20140414
  Serious: Yes (Life-Threatening, Hospitalization)
  Sender: FDA-Public Use
  Company Number: US-MYLANLABS-2013S1008901

PATIENT
  Age: 36 Year
  Sex: Female
  Weight: 53 kg

DRUGS (7)
  1. PHENYTOIN [Suspect]
     Indication: EPILEPSY
     Route: 065
  2. VALPROATE SEMISODIUM [Suspect]
     Indication: EPILEPSY
     Dosage: 250MG TWICE DAILY
     Route: 048
  3. PHENOBARBITAL SODIUM [Suspect]
     Indication: EPILEPSY
     Dosage: 30MG THREE TIMES DAILY
     Route: 065
  4. DIPHENHYDRAMINE [Concomitant]
     Route: 065
  5. METHYLPREDNISOLONE [Concomitant]
     Route: 065
  6. CEFTRIAXONE [Concomitant]
     Dosage: 1G DAILY
     Route: 042
  7. VANCOMYCIN [Concomitant]
     Dosage: 1G EVERY 12 HOURS
     Route: 042

REACTIONS (2)
  - Drug reaction with eosinophilia and systemic symptoms [Unknown]
  - Acute hepatic failure [Unknown]
